FAERS Safety Report 5427335-8 (Version None)
Quarter: 2007Q3

REPORT INFORMATION
  Report Type: 
  Country: None (occurrence: None)
  Receive Date: 20070823
  Receipt Date: 20070813
  Transmission Date: 20080115
  Serious: Yes (Hospitalization)
  Sender: FDA-Public Use
  Company Number: B0483974A

PATIENT
  Age: 64 Year
  Sex: Male

DRUGS (4)
  1. LITHIUM CARBONATE [Suspect]
     Indication: HYPOMANIA
     Dosage: 400 MG/TWICE PER DAY  DAY
  2. FRUSEMIDE [Concomitant]
  3. AMILORIDE HYDROCHLORIDE [Concomitant]
  4. RAMIPRIL [Concomitant]

REACTIONS (12)
  - ANTIPSYCHOTIC DRUG LEVEL INCREASED [None]
  - BLOOD CREATININE INCREASED [None]
  - BLOOD SODIUM INCREASED [None]
  - BLOOD UREA INCREASED [None]
  - CONFUSIONAL STATE [None]
  - HAEMODIALYSIS [None]
  - HAEMODYNAMIC INSTABILITY [None]
  - NEPHROGENIC DIABETES INSIPIDUS [None]
  - PNEUMOTHORAX [None]
  - RESPIRATORY FAILURE [None]
  - SEPSIS [None]
  - SOMNOLENCE [None]
